FAERS Safety Report 5596015-0 (Version None)
Quarter: 2008Q1

REPORT INFORMATION
  Report Type: 
  Country: None (occurrence: None)
  Receive Date: 20080118
  Receipt Date: 20070723
  Transmission Date: 20080703
  Serious: Yes (Hospitalization, Other)
  Sender: FDA-Public Use
  Company Number: US-ASTRAZENECA-2006UW01463

PATIENT
  Age: 52 Year
  Sex: Male
  Weight: 144.5 kg

DRUGS (24)
  1. SEROQUEL [Suspect]
     Indication: SCHIZOPHRENIA
     Dosage: 25 MG TO 200 MG
     Route: 048
     Dates: start: 20000918, end: 20050101
  2. SEROQUEL [Suspect]
     Indication: BIPOLAR DISORDER
     Dosage: 25 MG TO 200 MG
     Route: 048
     Dates: start: 20000918, end: 20050101
  3. SEROQUEL [Suspect]
     Indication: BIPOLAR I DISORDER
     Dosage: 25 MG TO 200 MG
     Route: 048
     Dates: start: 20000918, end: 20050101
  4. AMBIEN [Suspect]
     Indication: INSOMNIA
     Route: 048
     Dates: start: 20040918
  5. GEODON [Concomitant]
     Dates: start: 20040501, end: 20041001
  6. ZYPREXA [Concomitant]
     Indication: SCHIZOPHRENIA
     Route: 048
     Dates: start: 20000101, end: 20031006
  7. ZYPREXA [Concomitant]
     Indication: BIPOLAR DISORDER
     Route: 048
     Dates: start: 20000101, end: 20031006
  8. ZYPREXA [Concomitant]
     Indication: BIPOLAR I DISORDER
     Route: 048
     Dates: start: 20000101, end: 20031006
  9. CELEXA [Concomitant]
     Route: 048
     Dates: start: 20031006
  10. LITHIUM CARBONATE [Concomitant]
     Route: 048
     Dates: start: 20040712
  11. CLONIDINE [Concomitant]
     Route: 048
     Dates: start: 20040511
  12. WELLBUTRIN XL [Concomitant]
     Route: 048
     Dates: start: 20050119
  13. DEPAKOTE [Concomitant]
     Route: 048
     Dates: start: 20040921
  14. ZOLOFT [Concomitant]
     Route: 048
     Dates: start: 20050820
  15. ZOLOFT [Concomitant]
     Route: 048
     Dates: start: 20060208
  16. BEXTRA [Concomitant]
     Route: 048
     Dates: start: 20040512
  17. TRAMADOL HCL [Concomitant]
     Route: 048
     Dates: start: 20040604
  18. FLUOXETINE [Concomitant]
     Route: 048
     Dates: start: 20050110
  19. CARBAMAZEPINE [Concomitant]
     Route: 048
     Dates: start: 20050823
  20. LORATADINE [Concomitant]
     Route: 048
     Dates: start: 20060218
  21. LIPITOR [Concomitant]
     Route: 048
     Dates: start: 20060422
  22. LOTREL [Concomitant]
     Dosage: 5 MG - 20 MG
     Route: 048
     Dates: start: 20060503
  23. ENABLEX [Concomitant]
     Route: 048
     Dates: start: 20061204
  24. ENABLEX [Concomitant]
     Route: 048
     Dates: start: 20061216

REACTIONS (18)
  - ABNORMAL BEHAVIOUR [None]
  - BRONCHITIS [None]
  - CARDIAC FAILURE CONGESTIVE [None]
  - CELLULITIS [None]
  - CHEST PAIN [None]
  - DRUG WITHDRAWAL SYNDROME [None]
  - INSOMNIA [None]
  - LIVER DISORDER [None]
  - MUSCULOSKELETAL PAIN [None]
  - OBESITY [None]
  - OVERDOSE [None]
  - SKIN LESION [None]
  - SUICIDE ATTEMPT [None]
  - TREMOR [None]
  - TYPE 2 DIABETES MELLITUS [None]
  - UPPER RESPIRATORY TRACT INFECTION [None]
  - URINARY TRACT INFECTION [None]
  - VIRAL UPPER RESPIRATORY TRACT INFECTION [None]
